FAERS Safety Report 8782681 (Version 2)
Quarter: 2012Q4

REPORT INFORMATION
  Report Type: 
  Country: US (occurrence: US)
  Receive Date: 20120913
  Receipt Date: 20121001
  Transmission Date: 20130627
  Serious: Yes (Other)
  Sender: FDA-Public Use
  Company Number: US-PFIZER INC-2012122532

PATIENT
  Age: 63 Year
  Sex: Female
  Weight: 76.64 kg

DRUGS (10)
  1. XALKORI [Suspect]
     Indication: LUNG NEOPLASM MALIGNANT
     Dosage: 250 mg, 2x/day
     Route: 048
     Dates: start: 20120108
  2. EFFEXOR [Concomitant]
     Dosage: 75 mg, 1x/day
  3. PROTONIX [Concomitant]
     Dosage: 40 mg, 1x/day
  4. LEVOTHYROXINE [Concomitant]
     Dosage: 75 ug, 1x/day
  5. ADVAIR [Concomitant]
     Dosage: 250/50, 2x/day
  6. ATIVAN [Concomitant]
     Dosage: 1 mg ? to 1 twice a day
  7. FLEXERIL [Concomitant]
     Dosage: 10 mg, bedtime
  8. ALBUTEROL [Concomitant]
     Dosage: as needed
  9. VAGIFEM [Concomitant]
     Dosage: 25 ug, 2x/week
  10. ZOFRAN [Concomitant]
     Indication: NAUSEA
     Dosage: 8mg 1/2 to 1 tablet as needed, every 6 hours

REACTIONS (4)
  - Bronchostenosis [Unknown]
  - Nausea [Unknown]
  - Vomiting [Unknown]
  - Dyspnoea [Unknown]
